FAERS Safety Report 6018725-3 (Version None)
Quarter: 2008Q4

REPORT INFORMATION
  Report Type: 
  Country: None (occurrence: None)
  Receive Date: 20081223
  Receipt Date: 20081217
  Transmission Date: 20090506
  Serious: Yes (Hospitalization)
  Sender: FDA-Public Use
  Company Number: FR-GILEAD-2008-0019036

PATIENT
  Age: 36 Year
  Sex: Male

DRUGS (2)
  1. VIREAD [Suspect]
     Indication: DRUG USE FOR UNKNOWN INDICATION
     Dates: start: 20070101, end: 20081014
  2. COMBIVIR [Suspect]
     Dates: start: 20070101, end: 20081014

REACTIONS (1)
  - ANAEMIA HAEMOLYTIC AUTOIMMUNE [None]
